FAERS Safety Report 8309219-0 (Version None)
Quarter: 2012Q2

REPORT INFORMATION
  Report Type: 
  Country: None (occurrence: None)
  Receive Date: 20120424
  Receipt Date: 20120424
  Transmission Date: 20120825
  Serious: Yes (Other)
  Sender: FDA-Public Use
  Company Number: US-GILEAD-2012-0053476

PATIENT
  Age: 40 Year
  Sex: Female

DRUGS (4)
  1. RANEXA [Suspect]
     Indication: CHEST PAIN
  2. LIPITOR [Concomitant]
     Dosage: 80 MG, UNK
  3. LIPITOR [Concomitant]
     Dosage: 40 MG, UNK
     Dates: start: 20120320
  4. ATRIPLA [Concomitant]

REACTIONS (5)
  - MICTURITION FREQUENCY DECREASED [None]
  - RHABDOMYOLYSIS [None]
  - DIALYSIS [None]
  - CHROMATURIA [None]
  - CHEST PAIN [None]
